FAERS Safety Report 20034155 (Version 3)
Quarter: 2021Q4

REPORT INFORMATION
  Report Type: Spontaneous
  Country: US (occurrence: None)
  Receive Date: 20211104
  Receipt Date: 20211224
  Transmission Date: 20220303
  Serious: Yes (Life-Threatening, Hospitalization, Other)
  Sender: FDA-Public Use
  Company Number: US-Hikma Pharmaceuticals USA Inc.-US-H14001-21-04615

PATIENT
  Age: 18 Year
  Sex: Male

DRUGS (7)
  1. MERCAPTOPURINE [Suspect]
     Active Substance: MERCAPTOPURINE
     Indication: Acute lymphocytic leukaemia
     Dosage: 200 MG, FOUR DAYS A WEEK AND 175 MG, THREE DAYS A WEEK, (ON DAYS 1-84)
     Route: 048
     Dates: start: 20210811, end: 20211011
  2. METHOTREXATE [Suspect]
     Active Substance: METHOTREXATE
     Indication: Acute lymphocytic leukaemia
     Route: 048
     Dates: start: 20210811, end: 20211011
  3. METHOTREXATE [Suspect]
     Active Substance: METHOTREXATE
     Indication: Acute lymphocytic leukaemia
     Dosage: 15 MG ON DAY 1 AND 29 OF MAINTENANCE CYCLE 1
     Route: 037
  4. PREDNISONE [Suspect]
     Active Substance: PREDNISONE
     Indication: Acute lymphocytic leukaemia
     Dosage: 50 MG, TWICE DAILY ON DAYS 1-5, 29-33 AND 57-61
     Route: 048
     Dates: start: 20210811, end: 20211011
  5. RUXOLITINIB [Suspect]
     Active Substance: RUXOLITINIB
     Indication: Acute lymphocytic leukaemia
     Dosage: 100 MG, TWICE DAILY ON DAYS 1-14, 29-42, AND 57-70
     Route: 048
     Dates: start: 20210811, end: 20211011
  6. VINCRISTINE [Suspect]
     Active Substance: VINCRISTINE
     Indication: Acute lymphocytic leukaemia
     Dosage: 2 MG ON DAYS 1, 29 AND 57
     Route: 042
     Dates: start: 20210811
  7. OXYCODONE [Concomitant]
     Active Substance: OXYCODONE
     Indication: Product used for unknown indication
     Dosage: UNKNOWN
     Route: 065
     Dates: start: 20210312

REACTIONS (24)
  - Meningitis [Recovered/Resolved]
  - Infection [Unknown]
  - Leukaemic infiltration [Unknown]
  - Vomiting [Unknown]
  - Headache [Unknown]
  - Photophobia [Unknown]
  - Phonophobia [Unknown]
  - Body temperature increased [Unknown]
  - Listeriosis [Unknown]
  - Culture positive [Unknown]
  - Benign vascular neoplasm [Unknown]
  - Oedema [Unknown]
  - Cauda equina syndrome [Unknown]
  - Hyponatraemia [Unknown]
  - Inappropriate antidiuretic hormone secretion [Unknown]
  - Pain [Unknown]
  - Cerebral disorder [Unknown]
  - Injury [Unknown]
  - Cerebral salt-wasting syndrome [Recovered/Resolved]
  - Intracranial pressure increased [Recovered/Resolved]
  - Pleocytosis [Recovered/Resolved]
  - CSF protein increased [Recovered/Resolved]
  - Lung hypoinflation [Unknown]
  - Pyrexia [Unknown]

NARRATIVE: CASE EVENT DATE: 20211011
